FAERS Safety Report 6403947-X (Version None)
Quarter: 2009Q4

REPORT INFORMATION
  Report Type: 
  Country: None (occurrence: None)
  Receive Date: 20091016
  Receipt Date: 20090707
  Transmission Date: 20100525
  Serious: No
  Sender: FDA-Public Use
  Company Number: US-ALEXION-A200900552

PATIENT
  Sex: Male

DRUGS (16)
  1. SOLIRIS [Suspect]
     Indication: PAROXYSMAL NOCTURNAL HAEMOGLOBINURIA
     Dosage: 600 MG, QW
     Route: 042
     Dates: start: 20090323, end: 20090401
  2. SOLIRIS [Suspect]
     Dosage: 900 MG, Q2W
     Route: 042
     Dates: start: 20090420
  3. COZAAR [Concomitant]
     Dosage: 100 MG, QD
     Route: 048
     Dates: start: 20080918
  4. ZOLPIDEM [Concomitant]
     Dosage: 10 MG, QD
     Route: 048
     Dates: start: 20080918
  5. SIMVASTATIN [Concomitant]
     Dosage: 40 MG, QD, HS
     Route: 048
     Dates: start: 20080918
  6. TERAZOSIN HCL [Concomitant]
     Dosage: 5 MG, QD, HS
     Route: 048
     Dates: start: 20080918
  7. MECLIZINE                          /00072801/ [Concomitant]
     Dosage: 25 MG, QD, PRN
     Route: 048
     Dates: start: 20080918
  8. PAROXETINE [Concomitant]
     Dosage: 20 MG, QD
     Route: 048
     Dates: start: 20080918
  9. GABAPENTIN [Concomitant]
     Dosage: 300 MG, UNK
     Route: 048
     Dates: start: 20080918
  10. CLARITIN                           /00917501/ [Concomitant]
     Dosage: 10 MG, QD
     Route: 048
     Dates: start: 20080918
  11. FUROSEMIDE [Concomitant]
     Dosage: 40 MG, QD
     Route: 048
     Dates: start: 20080918
  12. PIROXICAM [Concomitant]
     Dosage: 20 MG, QD
     Route: 048
     Dates: start: 20080918
  13. DOCUSATE SODIUM [Concomitant]
     Dosage: 100 MG, BID
     Route: 048
     Dates: start: 20080918
  14. GLUCOSE [Concomitant]
     Dosage: 4 G, QD
     Route: 048
     Dates: start: 20080918
  15. VICODIN [Concomitant]
     Dosage: 5 MG/500 MG Q6H, PRN
     Route: 048
     Dates: start: 20090302
  16. AMBIEN [Concomitant]
     Indication: INSOMNIA
     Dosage: 10 MG, PRN
     Route: 048
     Dates: start: 20090401

REACTIONS (2)
  - DYSPHONIA [None]
  - THROAT IRRITATION [None]
